FAERS Safety Report 11681092 (Version 2)
Quarter: 2015Q4

REPORT INFORMATION
  Report Type: Spontaneous
  Country: US (occurrence: US)
  Receive Date: 20151027
  Receipt Date: 20151104
  Transmission Date: 20160304
  Serious: No
  Sender: FDA-Public Use
  Company Number: US-ELI_LILLY_AND_COMPANY-US201008006983

PATIENT
  Age: 74 Year
  Sex: Female

DRUGS (2)
  1. FORTEO [Suspect]
     Active Substance: TERIPARATIDE
     Indication: OSTEOPOROSIS
     Dosage: 20 UG, DAILY (1/D)
  2. FORTEO [Suspect]
     Active Substance: TERIPARATIDE
     Dosage: 20 UG, DAILY (1/D)

REACTIONS (9)
  - Waist circumference increased [Unknown]
  - Diarrhoea [Unknown]
  - Abdominal distension [Unknown]
  - Abdominal pain upper [Unknown]
  - Weight increased [Unknown]
  - Flatulence [Unknown]
  - Abdominal discomfort [Unknown]
  - Retching [Unknown]
  - Erythema [Recovering/Resolving]

NARRATIVE: CASE EVENT DATE: 201101
